FAERS Safety Report 25494648 (Version 1)
Quarter: 2025Q2

REPORT INFORMATION
  Report Type: Spontaneous
  Country: US (occurrence: None)
  Receive Date: 20250628
  Receipt Date: 20250628
  Transmission Date: 20250716
  Serious: Yes (Hospitalization)
  Sender: FDA-CTU
  Company Number: None

PATIENT
  Age: 4 Year
  Sex: Male
  Weight: 18.4 kg

DRUGS (3)
  1. CYCLOPHOSPHAMIDE [Suspect]
     Active Substance: CYCLOPHOSPHAMIDE
  2. NEULASTA [Suspect]
     Active Substance: PEGFILGRASTIM
  3. TOPOTECAN [Suspect]
     Active Substance: TOPOTECAN HYDROCHLORIDE

REACTIONS (19)
  - Vomiting [None]
  - Neutropenia [None]
  - Constipation [None]
  - Tachycardia [None]
  - Tachypnoea [None]
  - Abdominal pain [None]
  - Drug ineffective [None]
  - Haematemesis [None]
  - Pyrexia [None]
  - Hypotension [None]
  - Mental status changes [None]
  - Bradycardia [None]
  - Cardio-respiratory arrest [None]
  - Haemoglobin decreased [None]
  - Septic shock [None]
  - Disseminated intravascular coagulation [None]
  - Abdominal infection [None]
  - Capillary leak syndrome [None]
  - Abdominal compartment syndrome [None]

NARRATIVE: CASE EVENT DATE: 20250624
